FAERS Safety Report 9858891 (Version 1)
Quarter: 2014Q1

REPORT INFORMATION
  Report Type: Spontaneous
  Country: US (occurrence: None)
  Receive Date: 20140129
  Receipt Date: 20140129
  Transmission Date: 20141002
  Serious: Yes (Hospitalization)
  Sender: FDA-Public Use
  Company Number: UCM201401-000008

PATIENT
  Age: 50 Year
  Sex: Male

DRUGS (3)
  1. AMLODIPINE (AMLODIPINE) (AMLODIPINE) [Suspect]
  2. HYDROCHLOROTHIAZIDE [Suspect]
  3. LISINOPRIL [Suspect]

REACTIONS (4)
  - Respiratory failure [None]
  - Shock [None]
  - Intentional overdose [None]
  - Suicide attempt [None]
